FAERS Safety Report 7773129-8 (Version None)
Quarter: 2011Q3

REPORT INFORMATION
  Report Type: 
  Country: None (occurrence: None)
  Receive Date: 20110922
  Receipt Date: 20110113
  Transmission Date: 20111222
  Serious: No
  Sender: FDA-Public Use
  Company Number: US-ASTRAZENECA-2009UW16215

PATIENT
  Age: 118 Month
  Sex: Male
  Weight: 181.4 kg

DRUGS (13)
  1. ATENOLOL [Concomitant]
     Dosage: 25 MG HALF P.O. BID
     Route: 048
     Dates: start: 20030101
  2. SEROQUEL [Suspect]
     Dosage: 25-600 MG
     Route: 048
     Dates: start: 20020319
  3. RISPERDAL [Concomitant]
     Dates: start: 20020601
  4. ADDERALL 5 [Concomitant]
     Dates: start: 20020305
  5. SEROQUEL [Suspect]
     Indication: AGGRESSION
     Route: 048
     Dates: start: 20020305
  6. RISPERDAL [Concomitant]
     Dates: start: 20020301, end: 20020401
  7. ZOLOFT [Concomitant]
     Dates: start: 20020613
  8. PAXIL [Concomitant]
     Dates: start: 20040101
  9. SEROQUEL [Suspect]
     Indication: DEPRESSION
     Route: 048
     Dates: start: 20020305
  10. ABILIFY [Concomitant]
     Dates: start: 20080101
  11. SEROQUEL [Suspect]
     Dosage: 25-600 MG
     Route: 048
     Dates: start: 20020319
  12. RISPERDAL [Concomitant]
     Dates: start: 20040301
  13. RISPERDAL [Concomitant]
     Dosage: 0.5 MG-2 MG
     Dates: start: 20020613

REACTIONS (5)
  - HYPERLIPIDAEMIA [None]
  - OPTIC ATROPHY [None]
  - BLOOD CHOLESTEROL INCREASED [None]
  - BLINDNESS [None]
  - DIABETES MELLITUS INADEQUATE CONTROL [None]
